FAERS Safety Report 12412955 (Version 1)
Quarter: 2016Q2

REPORT INFORMATION
  Report Type: Spontaneous
  Country: US (occurrence: US)
  Receive Date: 20160527
  Receipt Date: 20160527
  Transmission Date: 20160815
  Serious: Yes (Hospitalization)
  Sender: FDA-Public Use
  Company Number: US-PRINSTON PHARMACEUTICAL INC.-2016PRN00109

PATIENT
  Age: 9 Year
  Sex: Female

DRUGS (3)
  1. RISPERIDONE. [Suspect]
     Active Substance: RISPERIDONE
     Indication: ATTENTION DEFICIT/HYPERACTIVITY DISORDER
     Dosage: 0.5 MG AM, 0.75 MG HS
     Route: 048
     Dates: start: 201604, end: 201605
  2. CONCERTA ER (ACTAVIS) [Concomitant]
     Dosage: 18 MG, 1X/DAY
  3. RISPERIDONE. [Suspect]
     Active Substance: RISPERIDONE
     Indication: OPPOSITIONAL DEFIANT DISORDER
     Dosage: 0.5 MG AM, 1 MG PM
     Route: 048
     Dates: start: 20160509

REACTIONS (6)
  - Attention deficit/hyperactivity disorder [Recovering/Resolving]
  - Drug screen negative [Unknown]
  - Oppositional defiant disorder [Recovering/Resolving]
  - Disruptive mood dysregulation disorder [Recovering/Resolving]
  - Drug ineffective for unapproved indication [Recovering/Resolving]
  - Therapy cessation [Recovered/Resolved]

NARRATIVE: CASE EVENT DATE: 2016
